FAERS Safety Report 22614913 (Version 1)
Quarter: 2023Q2

REPORT INFORMATION
  Report Type: Spontaneous
  Country: US (occurrence: US)
  Receive Date: 20230619
  Receipt Date: 20230619
  Transmission Date: 20230721
  Serious: Yes (Other)
  Sender: FDA-Public Use
  Company Number: US-VIIV HEALTHCARE LIMITED-US2023AMR081825

PATIENT

DRUGS (3)
  1. CABENUVA [Suspect]
     Active Substance: CABOTEGRAVIR\RILPIVIRINE
     Indication: HIV infection
     Dosage: UNK UNK, Q2M 600/900
     Route: 030
     Dates: start: 20220211, end: 2022
  2. CABENUVA [Suspect]
     Active Substance: CABOTEGRAVIR\RILPIVIRINE
     Indication: Acquired immunodeficiency syndrome
     Dosage: UNK UNK, MO 400/600
     Route: 030
     Dates: start: 2022, end: 2022
  3. CABENUVA [Suspect]
     Active Substance: CABOTEGRAVIR\RILPIVIRINE
     Dosage: UNK UNK, Q2M 600/900
     Route: 030
     Dates: start: 202209, end: 20230609

REACTIONS (2)
  - Pathogen resistance [Unknown]
  - Viral load increased [Unknown]

NARRATIVE: CASE EVENT DATE: 20230609
